FAERS Safety Report 8543662-X (Version None)
Quarter: 2012Q3

REPORT INFORMATION
  Report Type: 
  Country: None (occurrence: None)
  Receive Date: 20120719
  Receipt Date: 20120719
  Transmission Date: 20120928
  Serious: No
  Sender: FDA-Public Use
  Company Number: None

PATIENT
  Age: 56 Year
  Sex: Female

DRUGS (1)
  1. MAGNEVIST [Suspect]
     Dosage: X1 IV
     Route: 042
     Dates: start: 20120711, end: 20120711

REACTIONS (3)
  - SCAB [None]
  - BLISTER [None]
  - RASH [None]
